FAERS Safety Report 25513456 (Version 2)
Quarter: 2025Q3

REPORT INFORMATION
  Report Type: Spontaneous
  Country: US (occurrence: US)
  Receive Date: 20250703
  Receipt Date: 20250724
  Transmission Date: 20251020
  Serious: No
  Sender: SANOFI AVENTIS
  Company Number: US-SA-2025SA186863

PATIENT
  Age: 57 Year
  Sex: Male

DRUGS (6)
  1. DUPIXENT [Suspect]
     Active Substance: DUPILUMAB
     Indication: Nasal polyps
     Dosage: 300 MG, QOW
     Route: 058
     Dates: start: 20250107, end: 202506
  2. DUPIXENT [Suspect]
     Active Substance: DUPILUMAB
     Indication: Asthma
  3. DUPIXENT [Suspect]
     Active Substance: DUPILUMAB
     Indication: Sinusitis
  4. FASENRA [Suspect]
     Active Substance: BENRALIZUMAB
     Route: 058
     Dates: start: 20250624
  5. FASENRA [Suspect]
     Active Substance: BENRALIZUMAB
     Dosage: 30 MG, Q4W
     Route: 058
  6. FASENRA [Suspect]
     Active Substance: BENRALIZUMAB
     Dosage: 30 MG, Q8W
     Route: 058

REACTIONS (9)
  - Eosinophil count increased [Unknown]
  - Pain [Recovered/Resolved]
  - Rhinorrhoea [Unknown]
  - Dysphonia [Not Recovered/Not Resolved]
  - Mental status changes [Unknown]
  - General physical health deterioration [Unknown]
  - Headache [Not Recovered/Not Resolved]
  - Oropharyngeal pain [Not Recovered/Not Resolved]
  - Product use in unapproved indication [Unknown]

NARRATIVE: CASE EVENT DATE: 20250101
